FAERS Safety Report 4759622-0 (Version None)
Quarter: 2005Q3

REPORT INFORMATION
  Report Type: 
  Country: None (occurrence: None)
  Receive Date: 20050901
  Receipt Date: 20050413
  Transmission Date: 20060218
  Serious: Yes (Hospitalization, Disabling, Other)
  Sender: FDA-Public Use
  Company Number: US-MERCK-0504USA02205

PATIENT
  Age: 54 Year
  Sex: Male
  Weight: 85 kg

DRUGS (10)
  1. MOTRIN [Concomitant]
     Route: 065
     Dates: start: 20010101
  2. FLEXERIL [Concomitant]
     Route: 065
     Dates: start: 20010101
  3. RESTORIL [Concomitant]
     Indication: INSOMNIA
     Route: 065
  4. PAXIL [Concomitant]
     Indication: STRESS
     Route: 065
  5. PAXIL [Concomitant]
     Indication: ANXIETY
     Route: 065
  6. VIOXX [Suspect]
     Indication: PSORIATIC ARTHROPATHY
     Route: 048
     Dates: start: 20010301, end: 20010701
  7. VIOXX [Suspect]
     Route: 048
     Dates: start: 20021201, end: 20030408
  8. ELAVIL [Concomitant]
     Route: 065
     Dates: start: 19990101
  9. STERAPRED [Concomitant]
     Route: 065
     Dates: start: 20010101
  10. ULTRAM [Concomitant]
     Route: 065
     Dates: start: 20010101

REACTIONS (16)
  - ATRIAL FIBRILLATION [None]
  - BLOOD CHOLESTEROL INCREASED [None]
  - CARDIAC DISORDER [None]
  - CARDIAC FAILURE CONGESTIVE [None]
  - CORONARY ARTERY DISEASE [None]
  - CORONARY ARTERY OCCLUSION [None]
  - DYSPEPSIA [None]
  - EMPHYSEMATOUS BULLA [None]
  - HYPERTENSION [None]
  - INJURY [None]
  - LUNG DISORDER [None]
  - MEDICATION ERROR [None]
  - MYOCARDIAL INFARCTION [None]
  - MYOCARDIAL ISCHAEMIA [None]
  - PLEURAL EFFUSION [None]
  - PNEUMOTHORAX [None]
